FAERS Safety Report 12158087 (Version 2)
Quarter: 2016Q1

REPORT INFORMATION
  Report Type: Spontaneous
  Country: FR (occurrence: FR)
  Receive Date: 20160308
  Receipt Date: 20160322
  Transmission Date: 20160526
  Serious: Yes (Hospitalization, Other)
  Sender: FDA-Public Use
  Company Number: FR-AMGEN-FRASP2016026751

PATIENT
  Age: 68 Year
  Sex: Female

DRUGS (3)
  1. ARAVA [Suspect]
     Active Substance: LEFLUNOMIDE
     Indication: SPONDYLITIS
     Dosage: 20 MG, 1X/DAY
     Route: 048
  2. ENBREL [Suspect]
     Active Substance: ETANERCEPT
     Indication: SPONDYLITIS
     Dosage: 25 MG, WEEKLY
     Route: 058
     Dates: end: 201510
  3. ALTIM                              /00836301/ [Suspect]
     Active Substance: CORTIVAZOL
     Indication: ARTHRALGIA
     Dosage: ONE SINGLE INJECTION
     Route: 014
     Dates: start: 20150722, end: 20150722

REACTIONS (1)
  - Osteonecrosis [Not Recovered/Not Resolved]

NARRATIVE: CASE EVENT DATE: 20160210
